FAERS Safety Report 12953977 (Version 7)
Quarter: 2017Q3

REPORT INFORMATION
  Report Type: Spontaneous
  Country: IT (occurrence: IT)
  Receive Date: 20161118
  Receipt Date: 20170808
  Transmission Date: 20171127
  Serious: Yes (Other)
  Sender: FDA-Public Use
  Company Number: IT-ACCORD-045591

PATIENT
  Age: 63 Year
  Sex: Male
  Weight: 61 kg

DRUGS (3)
  1. GEMCITABINE/GEMCITABINE HYDROCHLORIDE [Suspect]
     Active Substance: GEMCITABINE\GEMCITABINE HYDROCHLORIDE
     Indication: PANCREATIC CARCINOMA
     Dosage: ALSO RECEIVED 1290 MG CYCLICAL FROM 10-AUG-2016 TO 17-OCT-2016 (69 DAYS).?ABRA/GEM CYCLE 4
     Route: 042
     Dates: start: 20151123
  2. TRIATEC [Concomitant]
     Active Substance: RAMIPRIL
     Indication: PRODUCT USED FOR UNKNOWN INDICATION
     Dosage: PATIENT ALSO RECEIVED 5 MG
  3. ABRAXANE [Suspect]
     Active Substance: PACLITAXEL
     Indication: PANCREATIC CARCINOMA
     Dosage: ABRA/GEM CYCLE 4
     Route: 042
     Dates: start: 20160810

REACTIONS (9)
  - Neutropenia [Recovering/Resolving]
  - Pyrexia [Recovering/Resolving]
  - Thrombocytopenia [Recovering/Resolving]
  - Paraesthesia [Not Recovered/Not Resolved]
  - Arthralgia [Recovering/Resolving]
  - Hypertransaminasaemia [Recovering/Resolving]
  - Infusion related reaction [Recovering/Resolving]
  - Anaemia [Unknown]
  - Abdominal pain [Recovering/Resolving]

NARRATIVE: CASE EVENT DATE: 20160121
